FAERS Safety Report 6638797-2 (Version None)
Quarter: 2010Q1

REPORT INFORMATION
  Report Type: 
  Country: None (occurrence: None)
  Receive Date: 20100317
  Receipt Date: 20100307
  Transmission Date: 20100710
  Serious: Yes (Hospitalization, Other)
  Sender: FDA-Public Use
  Company Number: US-PFIZER INC-2010030451

PATIENT
  Sex: Male
  Weight: 83.9 kg

DRUGS (1)
  1. LIPITOR [Suspect]
     Indication: BLOOD CHOLESTEROL
     Dosage: 20 MG, 1X/DAY
     Route: 048
     Dates: start: 20100115, end: 20100304

REACTIONS (2)
  - COGNITIVE DISORDER [None]
  - TRANSIENT GLOBAL AMNESIA [None]
